FAERS Safety Report 8247021-9 (Version None)
Quarter: 2012Q1

REPORT INFORMATION
  Report Type: 
  Country: None (occurrence: None)
  Receive Date: 20120330
  Receipt Date: 20120330
  Transmission Date: 20120608
  Serious: Yes (Hospitalization)
  Sender: FDA-Public Use
  Company Number: None

PATIENT
  Sex: Female
  Weight: 22 kg

DRUGS (1)
  1. EXJADE [Suspect]
     Indication: IRON OVERLOAD
     Dosage: 750 MG
     Route: 048
     Dates: start: 20060601, end: 20120329

REACTIONS (15)
  - BLOOD GLUCOSE DECREASED [None]
  - BLOOD PHOSPHORUS DECREASED [None]
  - BLOOD MAGNESIUM DECREASED [None]
  - VOMITING [None]
  - KETONURIA [None]
  - PROTEINURIA [None]
  - BLOOD SODIUM DECREASED [None]
  - BLOOD POTASSIUM DECREASED [None]
  - BLOOD CREATININE INCREASED [None]
  - PAIN IN EXTREMITY [None]
  - PCO2 DECREASED [None]
  - MENTAL STATUS CHANGES [None]
  - BACK PAIN [None]
  - HYPERTENSION [None]
  - ELECTROENCEPHALOGRAM ABNORMAL [None]
